FAERS Safety Report 5456667-2 (Version None)
Quarter: 2007Q3

REPORT INFORMATION
  Report Type: 
  Country: None (occurrence: None)
  Receive Date: 20070918
  Receipt Date: 20070330
  Transmission Date: 20080115
  Serious: Yes (Other)
  Sender: FDA-Public Use
  Company Number: US-ASTRAZENECA-2006UW25434

PATIENT
  Age: 43 Year
  Sex: Male
  Weight: 95.5 kg

DRUGS (6)
  1. SEROQUEL [Suspect]
     Route: 048
     Dates: start: 20030101, end: 20060701
  2. RISPERDAL [Concomitant]
     Route: 048
     Dates: start: 20050101
  3. THORAZINE [Concomitant]
     Route: 048
  4. VISTARIL [Concomitant]
     Dates: end: 20070101
  5. TRINEKYPHENIDYL [Concomitant]
     Dates: start: 20050101
  6. HYDROXYZINE [Concomitant]
     Dates: start: 20040101

REACTIONS (2)
  - DIABETES MELLITUS [None]
  - PANCREATITIS [None]
